FAERS Safety Report 9506394 (Version 1)
Quarter: 2013Q1

REPORT INFORMATION
  Report Type: Spontaneous
  Country: US (occurrence: None)
  Receive Date: 20130301
  Receipt Date: 20130301
  Transmission Date: 20140127
  Serious: Yes (Other)
  Sender: FDA-Public Use
  Company Number: RB-36677-2012

PATIENT
  Age: 2 Month
  Sex: Female

DRUGS (2)
  1. SUBOXONE 8 MG [Suspect]
     Route: 064
     Dates: start: 20110323, end: 201108
  2. BUPRENORPHINE 8 MG [Suspect]
     Dosage: (TAPERED TO 4-8 MG/ DAILY TRANSPLACENTAL)
     Route: 064
     Dates: start: 201108, end: 20111226

REACTIONS (5)
  - Foetal exposure during pregnancy [None]
  - Drug withdrawal syndrome [None]
  - Irritability [None]
  - Rhinorrhoea [None]
  - Sneezing [None]
